FAERS Safety Report 5322811-0 (Version None)
Quarter: 2007Q2

REPORT INFORMATION
  Report Type: 
  Country: None (occurrence: None)
  Receive Date: 20070511
  Receipt Date: 20070501
  Transmission Date: 20071010
  Serious: Yes (Other)
  Sender: FDA-Public Use
  Company Number: NL-PFIZER INC-2007033600

PATIENT
  Sex: Male
  Weight: 78 kg

DRUGS (2)
  1. LYRICA [Suspect]
     Indication: PAIN
     Route: 048
     Dates: start: 20070406, end: 20070407
  2. OXYNORM [Concomitant]
     Indication: PAIN

REACTIONS (1)
  - PAIN [None]
